FAERS Safety Report 5121069-5 (Version None)
Quarter: 2006Q4

REPORT INFORMATION
  Report Type: 
  Country: None (occurrence: None)
  Receive Date: 20061005
  Receipt Date: 20060922
  Transmission Date: 20070319
  Serious: Yes (Hospitalization)
  Sender: FDA-Public Use
  Company Number: PHBS2006US14773

PATIENT
  Age: 49 Year
  Sex: Female

DRUGS (9)
  1. CYCLOSPORINE [Suspect]
     Indication: RENAL TRANSPLANT
     Dosage: 150 MG, BID
     Route: 048
     Dates: end: 20030801
  2. TACROLIMUS [Concomitant]
     Indication: RENAL TRANSPLANT
  3. ORTHOCLONE OKT3 [Concomitant]
     Dosage: 10 MG/DAY
  4. OCTREOTIDE ACETATE [Concomitant]
  5. MYCOPHENOLATE MOFETIL [Suspect]
     Indication: RENAL TRANSPLANT
     Dosage: 250 MG, BID
     Route: 048
  6. MYCOPHENOLATE MOFETIL [Suspect]
     Dosage: 1500 MG/DAY
     Route: 048
  7. PREDNISONE (NGX) [Suspect]
     Indication: RENAL TRANSPLANT
     Dosage: 10 MG/DAY
     Route: 048
  8. DEXAMETHASONE TAB [Concomitant]
     Indication: KIDNEY TRANSPLANT REJECTION
  9. THYMOGLOBULINE [Concomitant]
     Indication: KIDNEY TRANSPLANT REJECTION
     Dosage: 100 MG/DAY

REACTIONS (24)
  - ABDOMINAL PAIN [None]
  - BLOOD AMYLASE INCREASED [None]
  - BLOOD BICARBONATE DECREASED [None]
  - BLOOD CREATININE INCREASED [None]
  - BLOOD SODIUM DECREASED [None]
  - BLOOD UREA INCREASED [None]
  - DEHYDRATION [None]
  - DIARRHOEA [None]
  - DRUG LEVEL DECREASED [None]
  - ERYTHEMA [None]
  - FAT NECROSIS [None]
  - GRAFT DYSFUNCTION [None]
  - KIDNEY TRANSPLANT REJECTION [None]
  - LIPASE INCREASED [None]
  - NODULE ON EXTREMITY [None]
  - PAIN OF SKIN [None]
  - PANCREAS TRANSPLANT REJECTION [None]
  - PANCREATECTOMY [None]
  - PANCREATIC ATROPHY [None]
  - PANCREATIC ENLARGEMENT [None]
  - PANCREATITIS [None]
  - PANNICULITIS [None]
  - SKIN NECROSIS [None]
  - SOFT TISSUE INFLAMMATION [None]
